FAERS Safety Report 17720761 (Version 3)
Quarter: 2020Q2

REPORT INFORMATION
  Report Type: Spontaneous
  Country: US (occurrence: US)
  Receive Date: 20200428
  Receipt Date: 20200521
  Transmission Date: 20200714
  Serious: Yes (Death, Hospitalization, Other)
  Sender: FDA-Public Use
  Company Number: US-009507513-2004USA008036

PATIENT
  Sex: Male
  Weight: 76.64 kg

DRUGS (2)
  1. JANUVIA [Suspect]
     Active Substance: SITAGLIPTIN PHOSPHATE
     Indication: TYPE 2 DIABETES MELLITUS
     Dosage: 50 MILLIGRAM, ONCE DAILY
     Route: 048
     Dates: start: 20160420, end: 20170719
  2. JANUVIA [Suspect]
     Active Substance: SITAGLIPTIN PHOSPHATE
     Dosage: 100 MILLIGRAM, ONCE DAILY
     Route: 048
     Dates: start: 20170720, end: 20180214

REACTIONS (17)
  - Dementia [Unknown]
  - Lymphadenopathy [Unknown]
  - Cholelithiasis [Unknown]
  - Somnolence [Unknown]
  - Urinary tract infection [Unknown]
  - Aortic arteriosclerosis [Unknown]
  - Diabetes mellitus inadequate control [Unknown]
  - Coagulopathy [Unknown]
  - Splenic vein occlusion [Unknown]
  - Lethargy [Unknown]
  - Pancreatic carcinoma metastatic [Not Recovered/Not Resolved]
  - Death [Fatal]
  - Urosepsis [Unknown]
  - Splenic infarction [Unknown]
  - Intervertebral disc degeneration [Unknown]
  - Renal cyst [Unknown]
  - Hypertension [Unknown]

NARRATIVE: CASE EVENT DATE: 20170719
